FAERS Safety Report 9228884 (Version 2)
Quarter: 2013Q2

REPORT INFORMATION
  Report Type: Spontaneous
  Country: AU (occurrence: AU)
  Receive Date: 20130412
  Receipt Date: 20130424
  Transmission Date: 20140414
  Serious: Yes (Life-Threatening, Hospitalization)
  Sender: FDA-Public Use
  Company Number: AU-BAXTER-2013BAX012858

PATIENT
  Age: 74 Year
  Sex: Male

DRUGS (1)
  1. KIOVIG NORMAL IMMUNOGLOBULIN (HUMAN) 10G/100ML FOR INTRAVENOUS USE INJ [Suspect]
     Indication: GUILLAIN-BARRE SYNDROME
     Dosage: 10 - 20 GM
     Route: 042
     Dates: start: 20130326, end: 20130326

REACTIONS (2)
  - Stridor [Recovered/Resolved with Sequelae]
  - Respiratory arrest [Recovered/Resolved with Sequelae]
